FAERS Safety Report 24628010 (Version 1)
Quarter: 2024Q4

REPORT INFORMATION
  Report Type: Report from Study
  Country: CA (occurrence: CA)
  Receive Date: 20241117
  Receipt Date: 20241117
  Transmission Date: 20250115
  Serious: Yes (Other)
  Sender: ALEXION PHARMACEUTICALS
  Company Number: CA-AstraZeneca-CH-00737082A

PATIENT

DRUGS (14)
  1. TEZEPELUMAB [Suspect]
     Active Substance: TEZEPELUMAB
     Indication: Asthma
     Dosage: 210 MILLIGRAM
  2. TEZEPELUMAB [Suspect]
     Active Substance: TEZEPELUMAB
     Dosage: 210 MILLIGRAM
  3. TEZEPELUMAB [Suspect]
     Active Substance: TEZEPELUMAB
     Dosage: 210 MILLIGRAM
  4. TEZEPELUMAB [Suspect]
     Active Substance: TEZEPELUMAB
     Dosage: 210 MILLIGRAM
  5. SIMPONI [Concomitant]
     Active Substance: GOLIMUMAB
     Dosage: Q2W INJECTION
  6. SIMPONI [Concomitant]
     Active Substance: GOLIMUMAB
     Dosage: Q2W INJECTION
     Route: 065
  7. MOMETASONE FUROATE [Concomitant]
     Active Substance: MOMETASONE FUROATE
     Dosage: 2 SPRAYS PER NOSTRIL,
  8. MOMETASONE FUROATE [Concomitant]
     Active Substance: MOMETASONE FUROATE
     Dosage: 2 SPRAYS PER NOSTRIL,
  9. VENTOLIN [Concomitant]
     Active Substance: ALBUTEROL SULFATE
     Dosage: 100 MCG PRN
  10. VENTOLIN [Concomitant]
     Active Substance: ALBUTEROL SULFATE
     Dosage: 100 MCG PRN
     Route: 065
  11. SYMBICORT [Concomitant]
     Active Substance: BUDESONIDE\FORMOTEROL FUMARATE DIHYDRATE
     Dosage: : 200 MCG 2INH BID MAX 12 INH PER DAY
  12. SYMBICORT [Concomitant]
     Active Substance: BUDESONIDE\FORMOTEROL FUMARATE DIHYDRATE
     Dosage: : 200 MCG 2INH BID MAX 12 INH PER DAY
     Route: 065
  13. SPIRIVA RESPIMAT [Concomitant]
     Active Substance: TIOTROPIUM BROMIDE
     Dosage: 2.5 MCG 2INH OD, START
  14. SPIRIVA RESPIMAT [Concomitant]
     Active Substance: TIOTROPIUM BROMIDE
     Dosage: 2.5 MCG 2INH OD, START

REACTIONS (3)
  - Rheumatoid arthritis [Unknown]
  - Injection site discomfort [Recovered/Resolved]
  - Injection site pain [Recovered/Resolved]
